FAERS Safety Report 5116016-6 (Version None)
Quarter: 2006Q3

REPORT INFORMATION
  Report Type: 
  Country: None (occurrence: None)
  Receive Date: 20060927
  Receipt Date: 20060217
  Transmission Date: 20061208
  Serious: No
  Sender: FDA-Public Use
  Company Number: US-BRISTOL-MYERS SQUIBB COMPANY-13288436

PATIENT
  Age: 63 Year
  Sex: Male
  Weight: 114 kg

DRUGS (7)
  1. DEFINITY [Suspect]
     Indication: ECHOCARDIOGRAM
     Route: 040
     Dates: start: 20060206, end: 20060206
  2. SYNTHROID [Concomitant]
  3. EZETIMIBE [Concomitant]
     Route: 048
  4. ISOSORBIDE MONONITRATE [Concomitant]
     Route: 048
  5. LISINOPRIL [Concomitant]
     Route: 048
  6. METOPROLOL [Concomitant]
     Route: 048
  7. ATORVASTATIN [Concomitant]
     Route: 048

REACTIONS (1)
  - BACK PAIN [None]
